FAERS Safety Report 9304795 (Version 1)
Quarter: 2013Q2

REPORT INFORMATION
  Report Type: Spontaneous
  Country: US (occurrence: None)
  Receive Date: 20130521
  Receipt Date: 20130521
  Transmission Date: 20140414
  Serious: Yes (Hospitalization)
  Sender: FDA-Public Use
  Company Number: None

PATIENT
  Age: 42 Year
  Sex: Male
  Weight: 108.3 kg

DRUGS (2)
  1. DILTIAZEM [Suspect]
     Route: 048
     Dates: start: 20130102, end: 20130109
  2. METOPROLOL [Suspect]
     Route: 048
     Dates: start: 20130107, end: 20130108

REACTIONS (3)
  - Palpitations [None]
  - Hypotension [None]
  - Bradycardia [None]
